FAERS Safety Report 5216670-4 (Version None)
Quarter: 2006Q4

REPORT INFORMATION
  Report Type: 
  Country: None (occurrence: None)
  Receive Date: 20061130
  Receipt Date: 20060816
  Transmission Date: 20070319
  Serious: Yes (Other)
  Sender: FDA-Public Use
  Company Number: US_0510123024

PATIENT
  Age: 25 Year
  Sex: Female
  Weight: 113.6 kg

DRUGS (5)
  1. ZYPREXA [Suspect]
     Indication: BIPOLAR DISORDER
     Dosage: 20 MG, 2/D
     Dates: start: 20030901, end: 20050701
  2. DIVALPROEX SODIUM (VALPROATE SEMINSODIUM) [Concomitant]
  3. BUPROPION HCL [Concomitant]
  4. MIRTAZAPINE [Concomitant]
  5. TRAZODONE HCL [Concomitant]

REACTIONS (4)
  - DIABETES MELLITUS [None]
  - POLYCYSTIC OVARIES [None]
  - PRESCRIBED OVERDOSE [None]
  - WEIGHT INCREASED [None]
